FAERS Safety Report 22072552 (Version 2)
Quarter: 2023Q1

REPORT INFORMATION
  Report Type: Spontaneous
  Country: US (occurrence: US)
  Receive Date: 20230308
  Receipt Date: 20230324
  Transmission Date: 20230418
  Serious: No
  Sender: FDA-Public Use
  Company Number: US-GSK-US2023AMR032571

PATIENT
  Sex: Female

DRUGS (1)
  1. BENLYSTA [Suspect]
     Active Substance: BELIMUMAB
     Indication: Systemic lupus erythematosus
     Dosage: 120 MG/KG, Z EVERY 4 WEEKS 10MGKG (56.93KG) 570MG
     Route: 042

REACTIONS (2)
  - Exposure during pregnancy [Unknown]
  - Live birth [Unknown]
